FAERS Safety Report 15573949 (Version 2)
Quarter: 2018Q4

REPORT INFORMATION
  Report Type: Spontaneous
  Country: IN (occurrence: IN)
  Receive Date: 20181101
  Receipt Date: 20181224
  Transmission Date: 20190205
  Serious: Yes (Other)
  Sender: FDA-Public Use
  Company Number: IN-CIPLA LTD.-2018IN22202

PATIENT

DRUGS (15)
  1. EFAVIRENZ. [Suspect]
     Active Substance: EFAVIRENZ
     Dosage: UNK
     Route: 065
     Dates: start: 201401
  2. LAMIVUDINE. [Suspect]
     Active Substance: LAMIVUDINE
     Indication: HIV INFECTION
     Dosage: UNK
     Route: 065
     Dates: start: 201309, end: 201311
  3. ETHAMBUTOL [Suspect]
     Active Substance: ETHAMBUTOL HYDROCHLORIDE
     Indication: TUBERCULOSIS
     Dosage: UNK
     Route: 065
     Dates: start: 201309, end: 201311
  4. ETHAMBUTOL [Suspect]
     Active Substance: ETHAMBUTOL HYDROCHLORIDE
     Dosage: UNK
     Route: 065
     Dates: start: 201401
  5. EFAVIRENZ. [Suspect]
     Active Substance: EFAVIRENZ
     Indication: HIV INFECTION
     Dosage: UNK
     Route: 065
     Dates: start: 201309, end: 201311
  6. ISONIAZID. [Suspect]
     Active Substance: ISONIAZID
     Indication: TUBERCULOSIS
     Dosage: UNK
     Route: 065
     Dates: start: 201309, end: 201311
  7. PYRAZINAMIDE. [Suspect]
     Active Substance: PYRAZINAMIDE
     Indication: TUBERCULOSIS
     Dosage: UNK
     Route: 065
     Dates: start: 201309, end: 201311
  8. ZIDOVUDINE. [Suspect]
     Active Substance: ZIDOVUDINE
     Indication: HIV INFECTION
     Dosage: UNK
     Route: 065
     Dates: start: 201309, end: 201311
  9. RIFAMPICIN [Suspect]
     Active Substance: RIFAMPIN
     Indication: TUBERCULOSIS
     Dosage: UNK
     Route: 065
     Dates: start: 201309, end: 201311
  10. ZIDOVUDINE. [Suspect]
     Active Substance: ZIDOVUDINE
     Dosage: UNK
     Route: 065
     Dates: start: 201401
  11. RIFAMPICIN [Suspect]
     Active Substance: RIFAMPIN
     Dosage: UNK
     Route: 065
     Dates: start: 201401
  12. LAMIVUDINE. [Suspect]
     Active Substance: LAMIVUDINE
     Dosage: UNK
     Route: 065
     Dates: start: 201401
  13. MOXIFLOXACIN. [Suspect]
     Active Substance: MOXIFLOXACIN
     Indication: PRODUCT USED FOR UNKNOWN INDICATION
     Dosage: UNK
     Route: 065
     Dates: start: 201401
  14. PYRAZINAMIDE. [Suspect]
     Active Substance: PYRAZINAMIDE
     Dosage: UNK
     Route: 065
     Dates: start: 201401
  15. ISONIAZID. [Suspect]
     Active Substance: ISONIAZID
     Dosage: UNK
     Route: 065
     Dates: start: 201401

REACTIONS (5)
  - Immune reconstitution inflammatory syndrome [Recovering/Resolving]
  - Urinary incontinence [Recovered/Resolved]
  - Condition aggravated [Unknown]
  - Anal incontinence [Recovered/Resolved]
  - Depressed level of consciousness [Unknown]
